FAERS Safety Report 8340165-2 (Version None)
Quarter: 2012Q2

REPORT INFORMATION
  Report Type: 
  Country: None (occurrence: None)
  Receive Date: 20120507
  Receipt Date: 20120320
  Transmission Date: 20120825
  Serious: Yes (Hospitalization, Other)
  Sender: FDA-Public Use
  Company Number: US-ASTRAZENECA-2012SE01219

PATIENT
  Age: 54 Year
  Sex: Male
  Weight: 84.8 kg

DRUGS (13)
  1. PRAVASTATIN [Concomitant]
  2. FLONASE [Concomitant]
  3. DILAUDID [Concomitant]
     Route: 030
  4. ZOFRAN [Concomitant]
     Route: 048
  5. TOPROL-XL [Concomitant]
  6. ALLEGRA [Concomitant]
  7. FLOMAX [Concomitant]
  8. VIMOVO [Suspect]
     Indication: ARTHRITIS
     Dosage: 500 MG NAPROXEN + 20 MG ESOMEPRAZOLE MAGNESIUM
     Route: 048
     Dates: start: 20111123
  9. LOTREL [Concomitant]
  10. PROTONIX [Concomitant]
  11. VIMOVO [Suspect]
     Dosage: 500 MG NAPROXEN + 20 MG ESOMEPRAZOLE MAGNESIUM TWICE A DAY
     Route: 048
     Dates: start: 20111210
  12. ASTELIN [Concomitant]
  13. COCKTAIL [Concomitant]

REACTIONS (1)
  - PANCREATITIS ACUTE [None]
